FAERS Safety Report 23368467 (Version 1)
Quarter: 2024Q1

REPORT INFORMATION
  Report Type: Spontaneous
  Country: US (occurrence: US)
  Receive Date: 20240105
  Receipt Date: 20240105
  Transmission Date: 20240410
  Serious: No
  Sender: FDA-Public Use
  Company Number: US-LEO Pharma-366471

PATIENT
  Age: 33 Year
  Sex: Female

DRUGS (1)
  1. ADBRY [Suspect]
     Active Substance: TRALOKINUMAB-LDRM
     Indication: Dermatitis atopic
     Dosage: INITIAL DOSE OF 500 MG SUBCUTANEOUSLY ON DAY 1
     Route: 058

REACTIONS (3)
  - Periorbital swelling [Unknown]
  - Eye irritation [Unknown]
  - Eye pain [Unknown]
